FAERS Safety Report 5874990-4 (Version None)
Quarter: 2008Q3

REPORT INFORMATION
  Report Type: 
  Country: None (occurrence: None)
  Receive Date: 20080909
  Receipt Date: 20080902
  Transmission Date: 20090109
  Serious: Yes (Death, Hospitalization)
  Sender: FDA-Public Use
  Company Number: DE-AVENTIS-200812343DE

PATIENT
  Age: 75 Year
  Sex: Female
  Weight: 80 kg

DRUGS (35)
  1. DOCETAXEL [Suspect]
     Indication: GASTRIC CANCER
     Dates: start: 20080701, end: 20080812
  2. CISPLATIN [Suspect]
     Indication: GASTRIC CANCER
     Dates: start: 20080701, end: 20080812
  3. FLUOROURACIL [Suspect]
     Indication: GASTRIC CANCER
     Dates: start: 20080701, end: 20080817
  4. DEXAMETHASONE TAB [Concomitant]
     Dates: start: 20080811, end: 20080822
  5. DEXAMETHASONE TAB [Concomitant]
     Dates: start: 20080811, end: 20080826
  6. NOVONORM [Concomitant]
     Dates: end: 20080823
  7. SIMVASTATIN [Concomitant]
     Dates: start: 20080501, end: 20080821
  8. EZETROL [Concomitant]
     Dates: end: 20080821
  9. IRON DRAGEES [Concomitant]
     Indication: IRON DEFICIENCY
     Dates: start: 20080501, end: 20080823
  10. MONO-EMBOLEX                       /00889602/ [Concomitant]
     Dates: start: 20080811, end: 20080824
  11. AMLODIPINE [Concomitant]
     Indication: HYPERTENSION
     Dates: start: 20080812, end: 20080818
  12. AMLODIPINE [Concomitant]
     Dates: start: 20080819, end: 20080822
  13. CONCOR                             /00802602/ [Concomitant]
     Dates: end: 20080825
  14. PANTOZOL                           /01263202/ [Concomitant]
     Indication: PROPHYLAXIS
     Dates: start: 20080501, end: 20080828
  15. DIOVANE [Concomitant]
     Indication: HYPERTENSION
     Dates: end: 20080822
  16. ALLOPURINOL [Concomitant]
     Indication: GOUT
     Dates: start: 20000101, end: 20080824
  17. METHIZOL [Concomitant]
     Dates: start: 19930101, end: 20080823
  18. DIGITOXIN INJ [Concomitant]
     Dates: start: 19930101, end: 20080828
  19. TORSEMIDE [Concomitant]
     Dates: start: 20000101, end: 20080823
  20. NOVAMIN                            /00013301/ [Concomitant]
     Indication: PAIN
     Dates: start: 20080815, end: 20080819
  21. IMODIUM [Concomitant]
     Dosage: DOSE: 4 CAPSULES
     Dates: start: 20080817, end: 20080817
  22. IMODIUM                            /00384302/ [Concomitant]
     Dosage: DOSE: ONE TABLET
     Dates: start: 20080820, end: 20080821
  23. DIFLUCAN [Concomitant]
     Dates: start: 20080819, end: 20080828
  24. METRONIDAZOLE [Concomitant]
     Dates: start: 20080819, end: 20080828
  25. UNACID                             /00917901/ [Concomitant]
     Dates: start: 20080819, end: 20080825
  26. FENTANYL PLASTER [Concomitant]
     Dates: start: 20080820
  27. FENTANYL PLASTER [Concomitant]
     Dates: start: 20080823
  28. FENTANYL PLASTER [Concomitant]
     Dates: start: 20080826
  29. LASIX [Concomitant]
     Indication: HYPERTENSION
     Dates: start: 20080823, end: 20080824
  30. PRIMAXIN [Concomitant]
     Dates: start: 20080825, end: 20080828
  31. NOVALGIN                           /00039501/ [Concomitant]
     Dates: start: 20080824, end: 20080828
  32. COTRIM [Concomitant]
     Dosage: DOSE: 1-2 X 960
     Dates: start: 20080819, end: 20080825
  33. AMPHOTERICIN B [Concomitant]
     Dosage: DOSE: 6X1 PIPET
     Dates: start: 20080819, end: 20080828
  34. VANCOMYCIN HYDROCHLORIDE [Concomitant]
     Dates: start: 20080823, end: 20080828
  35. ALBUMINA HUMANA [Concomitant]
     Dates: start: 20080822, end: 20080828

REACTIONS (4)
  - DIARRHOEA [None]
  - LEUKOPENIA [None]
  - OLIGURIA [None]
  - RENAL FAILURE ACUTE [None]
